FAERS Safety Report 14832422 (Version 1)
Quarter: 2018Q2

REPORT INFORMATION
  Report Type: Spontaneous
  Country: US (occurrence: US)
  Receive Date: 20180418
  Receipt Date: 20180418
  Transmission Date: 20180711
  Serious: Yes (Hospitalization)
  Sender: FDA-Public Use
  Company Number: None

PATIENT
  Sex: Female

DRUGS (5)
  1. LEVOTHYROXINE 100MCG [Concomitant]
     Active Substance: LEVOTHYROXINE
  2. DEXAMETHASONE 0.5MG [Concomitant]
  3. MORPHINE SULFATE 30MG ER [Concomitant]
  4. ONDANSETRON 8MG [Concomitant]
     Active Substance: ONDANSETRON
  5. IBRANCE [Suspect]
     Active Substance: PALBOCICLIB
     Indication: BREAST CANCER
     Dosage: ?          OTHER FREQUENCY:DAILY X 21/28 DAYS;?
     Route: 048
     Dates: start: 20180417

REACTIONS (1)
  - Red blood cell count decreased [None]
